FAERS Safety Report 5325757-7 (Version None)
Quarter: 2007Q2

REPORT INFORMATION
  Report Type: 
  Country: None (occurrence: None)
  Receive Date: 20070509
  Receipt Date: 20070426
  Transmission Date: 20071010
  Serious: Yes (Hospitalization)
  Sender: FDA-Public Use
  Company Number: GXKR2007US03827

PATIENT
  Age: 33 Year
  Sex: Male

DRUGS (4)
  1. GABAPENTIN [Suspect]
     Dosage: 3600 MG/DAY
  2. PAROXETINE HCL [Concomitant]
  3. QUETIAPINE FUMARATE [Concomitant]
  4. CANNABIS (CANNABIS, CANNABIS SATIVA) [Concomitant]

REACTIONS (10)
  - AGITATION [None]
  - CONFUSIONAL STATE [None]
  - DELIRIUM TREMENS [None]
  - DISORIENTATION [None]
  - DRUG ABUSER [None]
  - DRUG WITHDRAWAL SYNDROME [None]
  - HYPERHIDROSIS [None]
  - HYPERREFLEXIA [None]
  - TACHYCARDIA [None]
  - TREMOR [None]
